FAERS Safety Report 7275101-3 (Version None)
Quarter: 2011Q1

REPORT INFORMATION
  Report Type: 
  Country: None (occurrence: None)
  Receive Date: 20110204
  Receipt Date: 20110124
  Transmission Date: 20110831
  Serious: Yes (Hospitalization, Other)
  Sender: FDA-Public Use
  Company Number: PHHY2011JP05916

PATIENT
  Age: 73 Year
  Sex: Male

DRUGS (2)
  1. GARENOXACIN [Suspect]
     Dosage: 200 MG, UNK
     Route: 048
     Dates: start: 20110118, end: 20110121
  2. RASILEZ [Suspect]
     Indication: HYPERTENSION
     Dosage: UNK
     Route: 048
     Dates: start: 20110118

REACTIONS (1)
  - HEPATIC FUNCTION ABNORMAL [None]
